FAERS Safety Report 21034157 (Version 3)
Quarter: 2022Q3

REPORT INFORMATION
  Report Type: Spontaneous
  Country: DE (occurrence: DE)
  Receive Date: 20220701
  Receipt Date: 20220817
  Transmission Date: 20221026
  Serious: No
  Sender: FDA-Public Use
  Company Number: DE-SANOFI-01166439

PATIENT
  Age: 79 Year
  Sex: Male
  Weight: 51.6 kg

DRUGS (2)
  1. DUPIXENT [Suspect]
     Active Substance: DUPILUMAB
     Indication: Nasal polyps
     Dosage: 200 MG
  2. DUPIXENT [Suspect]
     Active Substance: DUPILUMAB
     Indication: Asthma
     Dosage: 300 MG

REACTIONS (3)
  - Pyrexia [Unknown]
  - Sinus operation [Unknown]
  - Product use in unapproved indication [Unknown]
